FAERS Safety Report 4479485-0 (Version None)
Quarter: 2004Q4

REPORT INFORMATION
  Report Type: 
  Country: None (occurrence: None)
  Receive Date: 20041015
  Receipt Date: 20040929
  Transmission Date: 20050328
  Serious: Yes (Hospitalization)
  Sender: FDA-Public Use
  Company Number: 2004IC000535

PATIENT
  Age: 72 Year
  Sex: Male

DRUGS (8)
  1. FLUOROURACIL [Suspect]
     Indication: LARYNGEAL CANCER
     Dosage: 250 MG/INTRAVENOUS
     Route: 042
     Dates: start: 20040708, end: 20040728
  2. LOXOPROFEN (LOXOPROFEN) [Suspect]
     Dosage: 180 MG;ORAL
     Route: 048
     Dates: start: 20040724, end: 20040728
  3. SELBEX (TEPRENONE) [Suspect]
     Dosage: 150 MG;ORAL
     Route: 048
     Dates: start: 20040724, end: 20040728
  4. CHOCOLA A [Concomitant]
  5. ANCER (HYDROTHERMAL EXTRACT FROM TUBE) [Concomitant]
  6. AMLODIN [Concomitant]
  7. MUCOSAL [Concomitant]
  8. COLDRIN [Concomitant]

REACTIONS (9)
  - BLOOD GLUCOSE INCREASED [None]
  - DYSPNOEA [None]
  - GENERALISED ERYTHEMA [None]
  - GLUCOSE TOLERANCE IMPAIRED [None]
  - HEPATIC FUNCTION ABNORMAL [None]
  - HYPERAMYLASAEMIA [None]
  - JAUNDICE [None]
  - OCULAR ICTERUS [None]
  - PRURITUS [None]
